FAERS Safety Report 7135358-6 (Version None)
Quarter: 2010Q4

REPORT INFORMATION
  Report Type: 
  Country: None (occurrence: None)
  Receive Date: 20101203
  Receipt Date: 20101201
  Transmission Date: 20110411
  Serious: Yes (Other)
  Sender: FDA-Public Use
  Company Number: US-PFIZER INC-2010162188

PATIENT
  Sex: Female
  Weight: 96.145 kg

DRUGS (7)
  1. CHANTIX [Suspect]
     Indication: SMOKING CESSATION THERAPY
     Dosage: 1 MG, 2X/DAY
     Route: 048
     Dates: start: 20101101
  2. LISINOPRIL [Concomitant]
     Indication: HYPERTENSION
     Dosage: 10 MG, DAILY
  3. PROZAC [Concomitant]
     Dosage: 20 MG, DAILY
  4. PEPCID [Concomitant]
     Indication: GASTROOESOPHAGEAL REFLUX DISEASE
     Dosage: 20 MG, DAILY
  5. LAMICTAL [Concomitant]
     Indication: MOOD ALTERED
     Dosage: UNK
  6. XANAX [Concomitant]
     Dosage: 0.5 MG, AS NEEDED
  7. BONTRIL [Concomitant]
     Indication: OBESITY
     Dosage: UNK

REACTIONS (3)
  - AGITATION [None]
  - BIPOLAR DISORDER [None]
  - DEPRESSION [None]
